FAERS Safety Report 4428246-7 (Version None)
Quarter: 2004Q3

REPORT INFORMATION
  Report Type: 
  Country: None (occurrence: None)
  Receive Date: 20040813
  Receipt Date: 20040803
  Transmission Date: 20050211
  Serious: Yes (Other)
  Sender: FDA-Public Use
  Company Number: 2004041372

PATIENT
  Age: 73 Year
  Sex: Male
  Weight: 65.7716 kg

DRUGS (4)
  1. NORVASC [Suspect]
     Indication: HYPERTENSION
     Dosage: 5 MG (5 MG, 1 IN 1 D), ORAL
     Route: 048
     Dates: start: 19980101
  2. VALSARTAN (VALSARTAN) [Concomitant]
  3. FINASTERIDE [Concomitant]
  4. ATORVASTATIN (ATORVASTATIN) [Concomitant]

REACTIONS (7)
  - HAEMORRHAGE URINARY TRACT [None]
  - HYPERAEMIA [None]
  - LOSS OF CONSCIOUSNESS [None]
  - PROSTATIC DISORDER [None]
  - STENT PLACEMENT [None]
  - TREATMENT NONCOMPLIANCE [None]
  - VARICOSE VEIN [None]
